FAERS Safety Report 8482027 (Version 5)
Quarter: 2013Q4

REPORT INFORMATION
  Report Type: Spontaneous
  Country: US (occurrence: US)
  Receive Date: 20120322
  Receipt Date: 20131108
  Transmission Date: 20140711
  Serious: Yes (Hospitalization, Other)
  Sender: FDA-Public Use
  Company Number: US-009507513-2011SP056194

PATIENT
  Age: 24 Year
  Sex: Female
  Weight: 81.65 kg

DRUGS (4)
  1. NUVARING [Suspect]
     Indication: MENSTRUAL CYCLE MANAGEMENT
     Dates: start: 2007, end: 20091231
  2. NUVARING [Suspect]
     Dates: start: 200906
  3. HORMONAL CONTRACEPTIVES (UNSPECIFIED) [Suspect]
     Indication: PRODUCT USED FOR UNKNOWN INDICATION
  4. COUMADIN [Suspect]
     Indication: ANTICOAGULANT THERAPY
     Dates: start: 200912

REACTIONS (12)
  - Lung disorder [Unknown]
  - Pulmonary embolism [Unknown]
  - Hypercoagulation [Unknown]
  - Haemorrhagic disorder [Unknown]
  - Streptococcal infection [Unknown]
  - Muscle spasms [Unknown]
  - Deep vein thrombosis [Unknown]
  - Migraine [Unknown]
  - Off label use [Unknown]
  - Menorrhagia [Unknown]
  - Pulmonary mass [Unknown]
  - Atypical pneumonia [Unknown]
